FAERS Safety Report 16494278 (Version 1)
Quarter: 2019Q2

REPORT INFORMATION
  Report Type: Spontaneous
  Country: US (occurrence: US)
  Receive Date: 20190628
  Receipt Date: 20190628
  Transmission Date: 20190711
  Serious: Yes (Other)
  Sender: FDA-Public Use
  Company Number: US-SA-2017SA248096

PATIENT
  Age: 46 Year
  Sex: Female
  Weight: 93.44 kg

DRUGS (4)
  1. CARBOPLATIN. [Concomitant]
     Active Substance: CARBOPLATIN
  2. HERCEPTIN [Concomitant]
     Active Substance: TRASTUZUMAB
  3. TAXOTERE [Suspect]
     Active Substance: DOCETAXEL
     Indication: BREAST CANCER
     Dosage: 142-145MG,Q3W
     Route: 042
     Dates: start: 20080918, end: 20080918
  4. TAXOTERE [Suspect]
     Active Substance: DOCETAXEL
     Dosage: 142-145MG,Q3W
     Route: 042
     Dates: start: 200901, end: 200901

REACTIONS (2)
  - Psychological trauma [Unknown]
  - Alopecia [Recovering/Resolving]

NARRATIVE: CASE EVENT DATE: 200905
